FAERS Safety Report 10539168 (Version 3)
Quarter: 2016Q2

REPORT INFORMATION
  Report Type: Spontaneous
  Country: US (occurrence: US)
  Receive Date: 20141023
  Receipt Date: 20160509
  Transmission Date: 20160815
  Serious: No
  Sender: FDA-Public Use
  Company Number: US-PFIZER INC-2014290424

PATIENT
  Age: 63 Year
  Sex: Female

DRUGS (8)
  1. PREMARIN [Suspect]
     Active Substance: ESTROGENS, CONJUGATED
     Dosage: 0.9 MG, 1X/DAY
     Route: 048
     Dates: start: 20160411
  2. METOPROLOL ER [Concomitant]
     Active Substance: METOPROLOL SUCCINATE
     Dosage: UNK
  3. PREMARIN [Suspect]
     Active Substance: ESTROGENS, CONJUGATED
     Dosage: UNK
  4. PREMARIN [Suspect]
     Active Substance: ESTROGENS, CONJUGATED
     Indication: HORMONE REPLACEMENT THERAPY
     Dosage: 0.9 MG,
     Route: 048
     Dates: start: 1992
  5. PREMARIN [Suspect]
     Active Substance: ESTROGENS, CONJUGATED
     Dosage: UNK
  6. PREMARIN [Suspect]
     Active Substance: ESTROGENS, CONJUGATED
     Dosage: UNK (1 DAY 0.9 MG. NEXT DAY 0.625 M (DOING THERAPY FOR 1 YR.))
  7. PREMARIN [Suspect]
     Active Substance: ESTROGENS, CONJUGATED
     Dosage: 0.625 MG, ALTERNATE DAY
     Route: 048
     Dates: start: 20160411
  8. TOPROL XL 100 [Concomitant]
     Dosage: UNK
     Dates: start: 1992

REACTIONS (1)
  - Headache [Unknown]
